FAERS Safety Report 17473359 (Version 2)
Quarter: 2020Q3

REPORT INFORMATION
  Report Type: Spontaneous
  Country: AU (occurrence: AU)
  Receive Date: 20200228
  Receipt Date: 20200827
  Transmission Date: 20201102
  Serious: Yes (Death)
  Sender: FDA-Public Use
  Company Number: AU-AMERICAN REGENT INC-2020000504

PATIENT
  Age: 72 Year
  Sex: Female

DRUGS (6)
  1. NOVASONE [Concomitant]
     Active Substance: MOMETASONE FUROATE
     Indication: STAPHYLOCOCCAL INFECTION
     Dosage: 0.1 PERCENT
     Route: 061
     Dates: start: 20181011
  2. FERINJECT [Suspect]
     Active Substance: FERRIC CARBOXYMALTOSE
     Dosage: 1000 MILLIGRAM
     Dates: start: 20190722, end: 20190722
  3. FERINJECT [Suspect]
     Active Substance: FERRIC CARBOXYMALTOSE
     Indication: IRON DEFICIENCY ANAEMIA
     Dosage: 500 MILLIGRAM
     Dates: start: 20190318, end: 20190318
  4. NORSPAN [Concomitant]
     Active Substance: BUPRENORPHINE
     Indication: OSTEOARTHRITIS
     Dosage: 10 MICROGRAM PER HOUR
     Route: 061
     Dates: start: 20190717
  5. FUCIDIN (FUSIDIC ACID) [Concomitant]
     Active Substance: FUSIDIC ACID
     Indication: STAPHYLOCOCCAL INFECTION
     Dosage: 250 MILLIGRAM
     Route: 048
     Dates: start: 20190717
  6. FERINJECT [Suspect]
     Active Substance: FERRIC CARBOXYMALTOSE
     Dosage: 500 MILLIGRAM
     Dates: start: 20190418, end: 20190418

REACTIONS (1)
  - Gastrointestinal haemorrhage [Fatal]

NARRATIVE: CASE EVENT DATE: 20190726
